APPROVED DRUG PRODUCT: CLINDAMYCIN PHOSPHATE IN DEXTROSE 5% IN PLASTIC CONTAINER
Active Ingredient: CLINDAMYCIN PHOSPHATE
Strength: EQ 6MG BASE/ML
Dosage Form/Route: INJECTABLE;INJECTION
Application: N050648 | Product #001
Applicant: BAXTER HEALTHCARE CORP
Approved: Dec 29, 1989 | RLD: No | RS: No | Type: DISCN